FAERS Safety Report 4823533-2 (Version None)
Quarter: 2005Q4

REPORT INFORMATION
  Report Type: 
  Country: None (occurrence: None)
  Receive Date: 20051107
  Receipt Date: 20051021
  Transmission Date: 20060501
  Serious: Yes (Other)
  Sender: FDA-Public Use
  Company Number: 2005BL004555

PATIENT
  Age: 86 Year
  Sex: Female
  Weight: 62.5964 kg

DRUGS (2)
  1. GENTAMICIN SULFATE [Suspect]
     Indication: CONJUNCTIVITIS
     Dosage: 2 DROP; EVERY 4 HOURS, OPHTHALMIC
     Route: 047
     Dates: start: 20050323, end: 20050423
  2. HYDROCHLOROTHIAZIDE [Concomitant]

REACTIONS (7)
  - CATARACT [None]
  - CORNEAL DISORDER [None]
  - DRY EYE [None]
  - EYE IRRITATION [None]
  - FOREIGN BODY SENSATION IN EYES [None]
  - POOR QUALITY DRUG ADMINISTERED [None]
  - SLIT-LAMP TESTS ABNORMAL [None]
